FAERS Safety Report 4806526-0 (Version None)
Quarter: 2005Q4

REPORT INFORMATION
  Report Type: 
  Country: None (occurrence: None)
  Receive Date: 20051021
  Receipt Date: 20051013
  Transmission Date: 20060501
  Serious: Yes (Life-Threatening)
  Sender: FDA-Public Use
  Company Number: PL-ABBOTT-05P-129-0313678-00

PATIENT
  Age: 33 Year
  Sex: Male
  Weight: 90 kg

DRUGS (1)
  1. KLACID UNO [Suspect]
     Indication: DISSOCIATIVE DISORDER
     Route: 048
     Dates: start: 20050905, end: 20050907

REACTIONS (6)
  - ANXIETY [None]
  - CHOKING SENSATION [None]
  - FEAR [None]
  - FEELING ABNORMAL [None]
  - INSOMNIA [None]
  - SUICIDAL IDEATION [None]
